FAERS Safety Report 5178232-7 (Version None)
Quarter: 2006Q4

REPORT INFORMATION
  Report Type: 
  Country: None (occurrence: None)
  Receive Date: 20061208
  Receipt Date: 20061129
  Transmission Date: 20070319
  Serious: Yes (Life-Threatening, Hospitalization, Disabling, Other)
  Sender: FDA-Public Use
  Company Number: 2006018232

PATIENT
  Age: 69 Year
  Sex: Female
  Weight: 51 kg

DRUGS (9)
  1. LIPITOR [Suspect]
     Indication: HYPERCHOLESTEROLAEMIA
     Dosage: 80 MG (80 MG, 1 IN1 D), ORAL
     Route: 048
     Dates: start: 20040619, end: 20060120
  2. CLARITHROMYCIN [Suspect]
     Indication: ILL-DEFINED DISORDER
     Dosage: UNKNOWN (UNKNOWN), UNKNOWN
  3. LANSOPRAZOLE [Concomitant]
  4. NICORANDIL (NICORANDIL) [Concomitant]
  5. RAMIPRIL [Concomitant]
  6. ASPIRIN [Concomitant]
  7. BISOPROLOL FUMARATE [Concomitant]
  8. PLAVIX [Concomitant]
  9. PENICILLIN V [Concomitant]

REACTIONS (18)
  - ABASIA [None]
  - ALANINE AMINOTRANSFERASE INCREASED [None]
  - ASPARTATE AMINOTRANSFERASE INCREASED [None]
  - BLOOD ALBUMIN DECREASED [None]
  - BLOOD ALKALINE PHOSPHATASE INCREASED [None]
  - BLOOD BILIRUBIN INCREASED [None]
  - BLOOD CHLORIDE INCREASED [None]
  - GAMMA-GLUTAMYLTRANSFERASE INCREASED [None]
  - GASTROOESOPHAGEAL REFLUX DISEASE [None]
  - HAEMOGLOBIN INCREASED [None]
  - INFLUENZA LIKE ILLNESS [None]
  - LIVER FUNCTION TEST ABNORMAL [None]
  - LOWER RESPIRATORY TRACT INFECTION [None]
  - PCO2 DECREASED [None]
  - RENAL FAILURE ACUTE [None]
  - RESPIRATORY TRACT INFECTION [None]
  - RHABDOMYOLYSIS [None]
  - SELF-MEDICATION [None]
